FAERS Safety Report 4972595-0 (Version None)
Quarter: 2006Q1

REPORT INFORMATION
  Report Type: 
  Country: None (occurrence: None)
  Receive Date: 20060216
  Receipt Date: 20051130
  Transmission Date: 20060701
  Serious: No
  Sender: FDA-Public Use
  Company Number: TPA2005A01577

PATIENT
  Age: 45 Year
  Sex: Female
  Weight: 61.2356 kg

DRUGS (8)
  1. ROZEREM [Suspect]
     Indication: INSOMNIA
     Dosage: 8 MG, QHS, PER ORAL
     Route: 048
     Dates: start: 20051128
  2. EFFEXOR XR [Concomitant]
  3. LAMICTAL [Concomitant]
  4. CLONAZEPAM [Concomitant]
  5. AVALIDE (KARVEA HCT) [Concomitant]
  6. FOLIC ACID [Concomitant]
  7. SYNTHROID [Concomitant]
  8. YASMIN (PETIBELLE FILMTABLETTEN) [Concomitant]

REACTIONS (1)
  - INSOMNIA [None]
